FAERS Safety Report 6452586-3 (Version None)
Quarter: 2009Q4

REPORT INFORMATION
  Report Type: 
  Country: None (occurrence: None)
  Receive Date: 20091124
  Receipt Date: 20091117
  Transmission Date: 20100525
  Serious: Yes (Other)
  Sender: FDA-Public Use
  Company Number: GB-RANBAXY-2006RR-04905

PATIENT
  Age: 79 Year
  Sex: Female

DRUGS (4)
  1. SERTRALINE HCL [Suspect]
     Indication: GENERALISED ANXIETY DISORDER
     Dosage: 25 MG, UNK
     Route: 048
     Dates: start: 20060930, end: 20060930
  2. ASPIRIN [Concomitant]
     Dosage: 75 MG, 1/WEEK
     Route: 048
  3. ATORVASTATIN [Concomitant]
     Dosage: 10 MG, 1/WEEK
     Route: 048
  4. LEVOTHYROXINE SODIUM [Concomitant]
     Dosage: 50 UG, 1/WEEK
     Route: 048

REACTIONS (1)
  - POST PROCEDURAL HAEMORRHAGE [None]
